FAERS Safety Report 5462929-5 (Version None)
Quarter: 2007Q3

REPORT INFORMATION
  Report Type: 
  Country: None (occurrence: None)
  Receive Date: 20070920
  Receipt Date: 20070911
  Transmission Date: 20080115
  Serious: Yes (Other)
  Sender: FDA-Public Use
  Company Number: CA-AVENTIS-200718354GDDC

PATIENT
  Age: 47 Year
  Sex: Female

DRUGS (3)
  1. TAXOTERE [Suspect]
     Indication: BREAST CANCER
     Route: 042
     Dates: end: 20070716
  2. FLUOROURACIL INJ [Concomitant]
     Route: 042
  3. HERCEPTIN [Concomitant]
     Route: 042

REACTIONS (1)
  - SKIN NECROSIS [None]
